FAERS Safety Report 5329867-X (Version None)
Quarter: 2007Q2

REPORT INFORMATION
  Report Type: 
  Country: None (occurrence: None)
  Receive Date: 20070517
  Receipt Date: 20070517
  Transmission Date: 20071010
  Serious: Yes (Other)
  Sender: FDA-Public Use
  Company Number: None

PATIENT
  Sex: Female

DRUGS (1)
  1. LEVAQUIN [Suspect]
     Indication: BRONCHITIS
     Dosage: 500MG ONE TIME IV
     Route: 042
     Dates: start: 20070504, end: 20070504

REACTIONS (4)
  - BURNING SENSATION [None]
  - ERYTHEMA [None]
  - INFUSION RELATED REACTION [None]
  - SKIN IRRITATION [None]
